FAERS Safety Report 10897476 (Version 1)
Quarter: 2015Q1

REPORT INFORMATION
  Report Type: Report from Study
  Country: PR (occurrence: PR)
  Receive Date: 20150309
  Receipt Date: 20150309
  Transmission Date: 20150721
  Serious: Yes (Other)
  Sender: FDA-Public Use
  Company Number: PR-ABBVIE-15K-131-1353058-00

PATIENT
  Age: 56 Year
  Sex: Female
  Weight: 76.73 kg

DRUGS (7)
  1. CALCIUM [Concomitant]
     Active Substance: CALCIUM
     Indication: PRODUCT USED FOR UNKNOWN INDICATION
     Dosage: STARTED 5 YEARS AGO
     Route: 048
     Dates: start: 2010
  2. HUMIRA [Suspect]
     Active Substance: ADALIMUMAB
     Indication: RHEUMATOID ARTHRITIS
     Route: 058
     Dates: start: 2013, end: 2013
  3. PLAQUENIL [Concomitant]
     Active Substance: HYDROXYCHLOROQUINE SULFATE
     Indication: INFLAMMATION
     Dosage: STARTED 5 YEARS AGO
     Route: 048
     Dates: start: 2010
  4. SULINDAC. [Concomitant]
     Active Substance: SULINDAC
     Indication: PAIN
     Dosage: STARTED 5 YEARS AGO, EVERY OTHER DAY
     Route: 048
     Dates: start: 2010
  5. METHOTREXATE [Concomitant]
     Active Substance: METHOTREXATE
     Indication: RHEUMATOID ARTHRITIS
     Dosage: STARTED 5 YEARS AGO
     Route: 048
     Dates: start: 2010
  6. FOLIC ACID. [Concomitant]
     Active Substance: FOLIC ACID
     Indication: PRODUCT USED FOR UNKNOWN INDICATION
     Dosage: STARTED 5 YEARS AGO
     Route: 048
     Dates: start: 2010
  7. FLOVENT [Concomitant]
     Active Substance: FLUTICASONE PROPIONATE
     Indication: BRONCHIAL DISORDER
     Dosage: EVERY OTHER DAY
     Route: 048
     Dates: start: 201112

REACTIONS (6)
  - Abdominal pain upper [Unknown]
  - Cataract [Not Recovered/Not Resolved]
  - Viral diarrhoea [Recovered/Resolved]
  - Blindness [Recovered/Resolved]
  - Eye infection [Recovered/Resolved]
  - Nasopharyngitis [Not Recovered/Not Resolved]

NARRATIVE: CASE EVENT DATE: 201401
